FAERS Safety Report 18428497 (Version 1)
Quarter: 2020Q4

REPORT INFORMATION
  Report Type: Report from Study
  Country: US (occurrence: US)
  Receive Date: 20201026
  Receipt Date: 20201026
  Transmission Date: 20210114
  Serious: Yes (Hospitalization)
  Sender: FDA-Public Use
  Company Number: US-DSJP-DSU-2020-121796

PATIENT
  Sex: Male

DRUGS (3)
  1. PEXIDARTINIB [Suspect]
     Active Substance: PEXIDARTINIB
     Indication: SYNOVITIS
     Dosage: 400 MG, BID
     Route: 048
     Dates: start: 20200713
  2. PEXIDARTINIB [Suspect]
     Active Substance: PEXIDARTINIB
     Dosage: 200MG QAM AND 400MG QPM, BID
     Route: 048
  3. PEXIDARTINIB [Suspect]
     Active Substance: PEXIDARTINIB
     Dosage: 200MG QAM AND 400MG QPM, BID
     Route: 048
     Dates: start: 20200713

REACTIONS (10)
  - Joint swelling [Recovered/Resolved]
  - Fatigue [Recovered/Resolved]
  - Asthenia [Recovered/Resolved]
  - Hepatic enzyme abnormal [Recovered/Resolved]
  - Hair colour changes [Unknown]
  - Photosensitivity reaction [Recovered/Resolved]
  - Thirst [Recovered/Resolved]
  - Dry mouth [Recovered/Resolved]
  - Hepatic enzyme increased [Not Recovered/Not Resolved]
  - Depressed mood [Recovered/Resolved]

NARRATIVE: CASE EVENT DATE: 2020
